FAERS Safety Report 7958981-5 (Version None)
Quarter: 2011Q4

REPORT INFORMATION
  Report Type: 
  Country: None (occurrence: None)
  Receive Date: 20111206
  Receipt Date: 20111122
  Transmission Date: 20120403
  Serious: Yes (Hospitalization)
  Sender: FDA-Public Use
  Company Number: JP-UCBSA-022903

PATIENT
  Age: 76 Year
  Sex: Male

DRUGS (44)
  1. BUFFERIN [Suspect]
     Indication: MYALGIA
     Dosage: DAILY DOSE: 2 DF
     Route: 048
     Dates: start: 20090101
  2. MENEST [Concomitant]
     Dosage: DAILY DOSE: 200 MG
     Dates: start: 20101224
  3. DOPS [Concomitant]
     Route: 048
     Dates: start: 20090709, end: 20101122
  4. DOPS [Concomitant]
     Dosage: DAILY DOSE: 400 MG
     Dates: start: 20101224
  5. LUDIOMIL [Concomitant]
     Dosage: DAILY DOSE: 30 MG
     Route: 048
     Dates: start: 20101126
  6. AMITRIPTYLINE HCL [Concomitant]
     Dosage: DAILY DOSE: 10 MG
     Dates: start: 20110606
  7. UBRETID [Concomitant]
     Route: 048
     Dates: start: 20101126, end: 20101129
  8. SEIROGAN [Concomitant]
     Dosage: DAILY DOSE: 3 DF
     Dates: start: 20090101
  9. ROTIGOTINE [Suspect]
     Route: 062
     Dates: start: 20100917, end: 20100923
  10. ELADERM [Concomitant]
     Indication: SPINAL OSTEOARTHRITIS
     Dosage: QS
     Route: 062
     Dates: start: 20101009, end: 20101122
  11. ARTANE [Concomitant]
     Route: 048
     Dates: start: 20070726, end: 20101122
  12. ARICEPT [Concomitant]
     Dosage: DAILY DOSE: 5 MG
     Route: 048
     Dates: start: 20101126, end: 20101214
  13. DIAZEPAM [Concomitant]
     Route: 048
     Dates: start: 20101126
  14. AMITRIPTYLINE HCL [Concomitant]
     Dosage: DAILY DOSE: 10 MG
     Route: 048
     Dates: start: 20101126, end: 20110410
  15. FERROUS CITRATE [Concomitant]
     Route: 048
     Dates: start: 20101030, end: 20101122
  16. ROTIGOTINE [Suspect]
     Route: 062
     Dates: start: 20100903, end: 20100909
  17. CATLEP [Concomitant]
     Indication: SPINAL COMPRESSION FRACTURE
     Dosage: QS
     Route: 062
     Dates: start: 20100827, end: 20101122
  18. MENEST [Concomitant]
     Dosage: DAILY DOSE: 200 MG
     Route: 048
     Dates: start: 20101126, end: 20101214
  19. ARTANE [Concomitant]
     Dosage: DAILY DOSE: 4 MG
     Route: 048
     Dates: start: 20101126, end: 20101214
  20. HARNAL D [Concomitant]
     Route: 048
     Dates: start: 20050101, end: 20101122
  21. LUDIOMIL [Concomitant]
     Dosage: DAILY DOSE: 30 MG
     Route: 048
     Dates: start: 20051129, end: 20101122
  22. DIAZEPAM [Concomitant]
     Route: 048
     Dates: start: 20080415, end: 20101122
  23. SILECE [Concomitant]
     Dosage: DAILY DOSE: 1 MG
     Route: 048
     Dates: start: 20101126
  24. UBRETID [Concomitant]
     Indication: NEUROGENIC BLADDER
     Route: 048
     Dates: start: 20070523, end: 20101122
  25. UBRETID [Concomitant]
     Dosage: DAILY DOSE: 10 MG
     Route: 048
     Dates: start: 20101203
  26. LOXONIN [Concomitant]
     Indication: SPINAL COMPRESSION FRACTURE
     Route: 048
     Dates: start: 20100825, end: 20101122
  27. CATLEP [Concomitant]
     Indication: SPINAL OSTEOARTHRITIS
     Dosage: QS
     Route: 062
     Dates: start: 20100827, end: 20101122
  28. ROTIGOTINE [Suspect]
     Indication: PARKINSON'S DISEASE
     Dosage: DAILY DOSE:18 MG
     Route: 062
     Dates: start: 20100924, end: 20110909
  29. ROTIGOTINE [Suspect]
     Route: 062
     Dates: start: 20100910, end: 20100916
  30. RINLAXER [Concomitant]
     Indication: SPINAL COMPRESSION FRACTURE
     Route: 048
     Dates: start: 20100825, end: 20101122
  31. ELADERM [Concomitant]
     Indication: SPINAL COMPRESSION FRACTURE
     Dosage: QS
     Route: 062
     Dates: start: 20101009, end: 20101122
  32. MUSCOSTA [Concomitant]
     Route: 048
     Dates: start: 20100825, end: 20101122
  33. ARICEPT [Concomitant]
     Dosage: DAILY DOSE: 5 MG
     Dates: start: 20101225
  34. HARNAL D [Concomitant]
     Dosage: DAILY DOSE: 0.2 MG
     Route: 048
     Dates: start: 20101126
  35. LENDORMIN [Concomitant]
     Dosage: DAILY DOSE: 0.25 MG
     Route: 048
     Dates: start: 20050908, end: 20101121
  36. ARICEPT [Concomitant]
     Route: 048
     Dates: start: 20080117, end: 20101122
  37. LENDORMIN [Concomitant]
     Dosage: DAILY DOSE: 0.25 MG
     Route: 048
     Dates: start: 20101210
  38. SILECE [Concomitant]
     Dosage: DAILY DOSE: 1 MG
     Route: 048
     Dates: start: 20060110, end: 20101121
  39. VOLTAREN [Concomitant]
     Route: 048
     Dates: start: 20100824
  40. BUFFERIN [Suspect]
     Indication: HEADACHE
     Dosage: DAILY DOSE: 2 DF
     Route: 048
     Dates: start: 20090101
  41. MENEST [Concomitant]
     Route: 048
     Dates: start: 20070726, end: 20101122
  42. ARTANE [Concomitant]
     Dosage: DAILY DOSE: 4 MG
     Dates: start: 20101224
  43. AMITRIPTYLINE HCL [Concomitant]
     Dosage: DAILY DOSE: 10 MG
     Route: 048
     Dates: start: 20070424, end: 20101121
  44. DOPS [Concomitant]
     Dosage: DAILY DOSE: 400 MG
     Route: 048
     Dates: start: 20101126, end: 20101214

REACTIONS (1)
  - GASTRIC ULCER HAEMORRHAGE [None]
